FAERS Safety Report 9520169 (Version 2)
Quarter: 2015Q1

REPORT INFORMATION
  Report Type: Spontaneous
  Country: US (occurrence: US)
  Receive Date: 20130912
  Receipt Date: 20150211
  Transmission Date: 20150721
  Serious: Yes (Hospitalization)
  Sender: FDA-Public Use
  Company Number: US-GLAXOSMITHKLINE-A1041232A

PATIENT
  Age: 51 Year
  Sex: Female

DRUGS (6)
  1. VENTOLIN [Suspect]
     Active Substance: ALBUTEROL SULFATE
     Indication: DYSPNOEA
     Dosage: 90 MCG
     Route: 055
     Dates: start: 20120801
  2. ADVAIR HFA [Suspect]
     Active Substance: FLUTICASONE PROPIONATE\SALMETEROL XINAFOATE
     Indication: LUNG DISORDER
  3. ADVAIR HFA [Suspect]
     Active Substance: FLUTICASONE PROPIONATE\SALMETEROL XINAFOATE
     Indication: DYSPNOEA
     Dosage: 500/50 MCG
     Route: 055
     Dates: start: 20120801
  4. VERAMYST [Suspect]
     Active Substance: FLUTICASONE FUROATE
     Indication: DYSPNOEA
     Dosage: 27.5 MCG
     Route: 045
     Dates: start: 20120801
  5. VERAMYST [Suspect]
     Active Substance: FLUTICASONE FUROATE
     Indication: LUNG DISORDER
  6. VENTOLIN [Suspect]
     Active Substance: ALBUTEROL SULFATE
     Indication: LUNG DISORDER

REACTIONS (2)
  - Adverse event [Unknown]
  - Varicella [Unknown]

NARRATIVE: CASE EVENT DATE: 201501
